FAERS Safety Report 7943147-5 (Version None)
Quarter: 2011Q4

REPORT INFORMATION
  Report Type: 
  Country: None (occurrence: None)
  Receive Date: 20111128
  Receipt Date: 20111116
  Transmission Date: 20120403
  Serious: Yes (Other)
  Sender: FDA-Public Use
  Company Number: PHFR2011GB006616

PATIENT
  Sex: Female

DRUGS (6)
  1. METFORMIN HCL [Concomitant]
  2. SIMVASTATIN [Concomitant]
  3. VENLAFAXINE [Concomitant]
  4. CLOZARIL [Suspect]
     Indication: SCHIZOPHRENIA
     Route: 048
     Dates: start: 20111005
  5. ARIPIPRAZOLE [Concomitant]
  6. LEVOTHYROXINE SODIUM [Concomitant]

REACTIONS (9)
  - WHITE BLOOD CELL COUNT DECREASED [None]
  - CHOLINERGIC SYNDROME [None]
  - NEUTROPENIA [None]
  - NEUTROPHIL COUNT DECREASED [None]
  - DIZZINESS [None]
  - NAUSEA [None]
  - DIARRHOEA [None]
  - HYPERGLYCAEMIA [None]
  - DYSPNOEA [None]
